FAERS Safety Report 6507243-1 (Version None)
Quarter: 2009Q4

REPORT INFORMATION
  Report Type: 
  Country: None (occurrence: None)
  Receive Date: 20091221
  Receipt Date: 20091215
  Transmission Date: 20100525
  Serious: Yes (Death)
  Sender: FDA-Public Use
  Company Number: PHHY2009JP55936

PATIENT
  Sex: Female

DRUGS (5)
  1. ZOLEDRONATE T29581+ [Suspect]
     Indication: METASTASES TO BONE
     Dosage: 4 MG DILUTED TO 100ML EVERY FOUR WEEKS
     Route: 042
     Dates: start: 20080326, end: 20080424
  2. TAXOTERE [Concomitant]
     Dosage: 100 MG, UNK
     Route: 042
     Dates: start: 20080108, end: 20080430
  3. GRAN [Concomitant]
     Dosage: 75 UG, UNK
     Route: 042
     Dates: start: 20080328, end: 20080330
  4. PENICILLIN VK [Concomitant]
     Dosage: 2 G, UNK
     Route: 042
     Dates: start: 20080328, end: 20080403
  5. PANSPORIN [Concomitant]
     Dosage: 2 G, UNK
     Route: 042
     Dates: start: 20080410, end: 20080414

REACTIONS (1)
  - DEATH [None]
